FAERS Safety Report 6686473-2 (Version None)
Quarter: 2010Q2

REPORT INFORMATION
  Report Type: 
  Country: None (occurrence: None)
  Receive Date: 20100419
  Receipt Date: 20100412
  Transmission Date: 20101027
  Serious: Yes (Other)
  Sender: FDA-Public Use
  Company Number: JP-ROCHE-681435

PATIENT
  Sex: Female
  Weight: 68 kg

DRUGS (13)
  1. PEGASYS [Suspect]
     Indication: HEPATITIS C
     Route: 058
     Dates: start: 20090714, end: 20090803
  2. PEGASYS [Suspect]
     Route: 058
     Dates: start: 20090817, end: 20100125
  3. COPEGUS [Suspect]
     Indication: HEPATITIS C
     Route: 048
     Dates: start: 20090714, end: 20090727
  4. COPEGUS [Suspect]
     Route: 048
     Dates: start: 20090728, end: 20090809
  5. COPEGUS [Suspect]
     Route: 048
     Dates: start: 20090810, end: 20100124
  6. LOXONIN [Concomitant]
     Route: 048
     Dates: start: 20090714
  7. MUCOSTA [Concomitant]
     Route: 048
     Dates: start: 20090714
  8. NAUZELIN [Concomitant]
     Route: 048
     Dates: start: 20090728
  9. ACINON [Concomitant]
     Route: 048
     Dates: start: 20090728
  10. NIZATIDINE [Concomitant]
     Route: 048
     Dates: end: 20090727
  11. ADALAT CC [Concomitant]
     Route: 048
     Dates: end: 20100118
  12. LOXONIN [Concomitant]
     Dosage: FORM: TAPE
     Route: 061
     Dates: start: 20090831
  13. CANDESARTAN CILEXETIL [Concomitant]
     Route: 048
     Dates: start: 20100118

REACTIONS (2)
  - CARDIAC FAILURE [None]
  - RETINAL EXUDATES [None]
